FAERS Safety Report 14870391 (Version 3)
Quarter: 2019Q3

REPORT INFORMATION
  Report Type: Spontaneous
  Country: US (occurrence: US)
  Receive Date: 20180509
  Receipt Date: 20190716
  Transmission Date: 20191004
  Serious: Yes (Other)
  Sender: FDA-Public Use
  Company Number: US-ASTRAZENECA-2018SE59096

PATIENT
  Age: 65 Year
  Sex: Male
  Weight: 94.3 kg

DRUGS (22)
  1. NEXIUM [Suspect]
     Active Substance: ESOMEPRAZOLE MAGNESIUM
     Route: 048
     Dates: start: 1990, end: 2016
  2. CIALIS [Concomitant]
     Active Substance: TADALAFIL
     Dates: start: 20100212
  3. ASPIRIN. [Concomitant]
     Active Substance: ASPIRIN
  4. METOPROLOL TARTRATE. [Concomitant]
     Active Substance: METOPROLOL TARTRATE
     Dates: start: 20100112
  5. SIMVASTATIN. [Concomitant]
     Active Substance: SIMVASTATIN
     Dates: start: 20100516
  6. MECLIZINE HCL [Concomitant]
     Active Substance: MECLIZINE HYDROCHLORIDE
     Dates: start: 20111121
  7. AMIODARONE [Concomitant]
     Active Substance: AMIODARONE
     Dates: start: 20100112
  8. ECONAZOLE NITRATE. [Concomitant]
     Active Substance: ECONAZOLE NITRATE
     Dates: start: 20100203
  9. LIPITOR [Concomitant]
     Active Substance: ATORVASTATIN CALCIUM
     Dates: start: 20100113
  10. NEXIUM [Suspect]
     Active Substance: ESOMEPRAZOLE MAGNESIUM
     Route: 048
  11. CLOPIDOGREL BISULFATE. [Concomitant]
     Active Substance: CLOPIDOGREL BISULFATE
     Dates: start: 20121210
  12. KLOR-CON [Concomitant]
     Active Substance: POTASSIUM CHLORIDE
     Dates: start: 20100111
  13. VITAMIN D2 [Concomitant]
     Active Substance: ERGOCALCIFEROL
  14. QUINAPRIL. [Concomitant]
     Active Substance: QUINAPRIL
     Dates: start: 20101106
  15. LEVEMIR [Concomitant]
     Active Substance: INSULIN DETEMIR
     Dates: start: 20100416
  16. NOVOLOG [Concomitant]
     Active Substance: INSULIN ASPART
     Dates: start: 20100111
  17. PRILOSEC OTC [Concomitant]
     Active Substance: OMEPRAZOLE MAGNESIUM
  18. METFORMIN HCL [Concomitant]
     Active Substance: METFORMIN HYDROCHLORIDE
     Dates: start: 20110812
  19. CARVEDILOL. [Concomitant]
     Active Substance: CARVEDILOL
     Dates: start: 20110216
  20. ATORVASTATIN CALCIUM. [Concomitant]
     Active Substance: ATORVASTATIN CALCIUM
  21. FUROSEMIDE. [Concomitant]
     Active Substance: FUROSEMIDE
  22. ZOLPIDEM TARTRATE. [Concomitant]
     Active Substance: ZOLPIDEM TARTRATE
     Dates: start: 20100113

REACTIONS (4)
  - Chronic kidney disease [Not Recovered/Not Resolved]
  - Acute kidney injury [Unknown]
  - Nephrogenic anaemia [Unknown]
  - End stage renal disease [Unknown]

NARRATIVE: CASE EVENT DATE: 20140606
